FAERS Safety Report 6440195-1 (Version None)
Quarter: 2009Q4

REPORT INFORMATION
  Report Type: 
  Country: None (occurrence: None)
  Receive Date: 20091113
  Receipt Date: 20090814
  Transmission Date: 20100525
  Serious: No
  Sender: FDA-Public Use
  Company Number: A0802289A

PATIENT
  Age: 55 Year
  Sex: Male

DRUGS (2)
  1. COREG [Suspect]
     Route: 048
     Dates: start: 20090101
  2. BLOOD PRESSURE MEDICATION [Concomitant]

REACTIONS (2)
  - HEART RATE DECREASED [None]
  - SLUGGISHNESS [None]
